FAERS Safety Report 9659160 (Version 2)
Quarter: 2013Q4

REPORT INFORMATION
  Report Type: Spontaneous
  Country: GB (occurrence: GB)
  Receive Date: 20131031
  Receipt Date: 20131120
  Transmission Date: 20140711
  Serious: Yes (Other)
  Sender: FDA-Public Use
  Company Number: GB-ROCHE-1293979

PATIENT
  Age: 67 Year
  Sex: Female

DRUGS (11)
  1. MABTHERA [Suspect]
     Indication: CHRONIC LYMPHOCYTIC LEUKAEMIA
     Route: 065
     Dates: start: 20131010
  2. MABTHERA [Suspect]
     Route: 042
     Dates: start: 20131010, end: 20131010
  3. PARACETAMOL [Concomitant]
  4. HYDROCORTISONE [Concomitant]
  5. PIRITON [Concomitant]
     Route: 042
  6. CIPROFLOXACIN [Concomitant]
     Route: 048
  7. FLUDARABINE [Concomitant]
     Route: 048
  8. CYCLOPHOSPHAMIDE [Concomitant]
     Route: 048
  9. ALLOPURINOL [Concomitant]
     Route: 065
  10. METOCLOPRAMIDE [Concomitant]
     Route: 048
  11. CO-TRIMOXAZOLE [Concomitant]
     Route: 065

REACTIONS (7)
  - Feeling hot [Recovered/Resolved]
  - Dizziness [Recovered/Resolved]
  - Dizziness [Recovered/Resolved]
  - Flushing [Recovered/Resolved]
  - Hyperhidrosis [Recovered/Resolved]
  - Malaise [Recovered/Resolved]
  - Syncope [Recovered/Resolved]
